FAERS Safety Report 7368612-3 (Version None)
Quarter: 2011Q1

REPORT INFORMATION
  Report Type: 
  Country: None (occurrence: None)
  Receive Date: 20110314
  Receipt Date: 20110303
  Transmission Date: 20110831
  Serious: Yes (Life-Threatening)
  Sender: FDA-Public Use
  Company Number: FK201100387

PATIENT
  Age: 72 Year
  Sex: Female

DRUGS (5)
  1. GEMCITABINE [Concomitant]
  2. CISPLATIN [Concomitant]
  3. ONDANSETRON [Concomitant]
  4. MANNITOL [Suspect]
     Indication: POLYURIA
     Dosage: INTRAVENOUS
     Route: 042
     Dates: start: 20110217, end: 20110217
  5. DEXAMETHASONE (DEXAMETHASONE) [Concomitant]

REACTIONS (3)
  - CHEST DISCOMFORT [None]
  - INFUSION RELATED REACTION [None]
  - DYSPNOEA [None]
